FAERS Safety Report 9790131 (Version 7)
Quarter: 2018Q1

REPORT INFORMATION
  Report Type: Report from Study
  Country: JP (occurrence: JP)
  Receive Date: 20131231
  Receipt Date: 20180206
  Transmission Date: 20180509
  Serious: Yes (Hospitalization, Other)
  Sender: FDA-Public Use
  Company Number: JP-ASTELLAS-2012JP002692

PATIENT
  Age: 71 Year
  Sex: Female

DRUGS (60)
  1. JUVELA N [Concomitant]
     Active Substance: TOCOPHERYL NICOTINATE, D-.ALPHA.
     Indication: PERIPHERAL CIRCULATORY FAILURE
     Route: 048
     Dates: end: 20111207
  2. METHYCOBAL [Concomitant]
     Active Substance: METHYLCOBALAMIN
     Indication: NEUROPATHY PERIPHERAL
     Route: 048
     Dates: end: 20111207
  3. BONALON [Concomitant]
     Active Substance: ALENDRONATE SODIUM
     Route: 048
     Dates: start: 20130704, end: 20140305
  4. PURSENNID [Concomitant]
     Active Substance: SENNOSIDES A AND B
     Route: 048
     Dates: start: 20090709, end: 20090902
  5. SELBEX [Concomitant]
     Active Substance: TEPRENONE
     Route: 048
     Dates: start: 20100408, end: 20110112
  6. WARFARIN                           /00014803/ [Concomitant]
     Active Substance: WARFARIN
     Route: 048
     Dates: start: 20100513, end: 20100609
  7. WARFARIN                           /00014803/ [Concomitant]
     Active Substance: WARFARIN
     Route: 048
     Dates: start: 20140605, end: 20140924
  8. TOYOFAROL [Concomitant]
     Active Substance: ALFACALCIDOL
     Indication: OSTEOPOROSIS PROPHYLAXIS
  9. LORFENAMIN [Concomitant]
     Active Substance: LOXOPROFEN
     Indication: RIB FRACTURE
     Dosage: UNK UNK, UNKNOWN FREQ.
     Route: 048
     Dates: start: 2013
  10. LOXONIN [Concomitant]
     Active Substance: LOXOPROFEN SODIUM
     Indication: HUMERUS FRACTURE
  11. TACROLIMUS. [Suspect]
     Active Substance: TACROLIMUS
     Route: 048
     Dates: start: 20150409, end: 20160720
  12. PREDNISOLONE. [Suspect]
     Active Substance: PREDNISOLONE
     Route: 048
     Dates: start: 20140814
  13. WARFARIN                           /00014803/ [Concomitant]
     Active Substance: WARFARIN
     Indication: PROPHYLAXIS
     Route: 048
     Dates: end: 20100203
  14. WARFARIN                           /00014803/ [Concomitant]
     Active Substance: WARFARIN
     Route: 048
     Dates: start: 20140925
  15. LOCHOL [Concomitant]
     Active Substance: FLUVASTATIN SODIUM
     Route: 048
     Dates: start: 20110630, end: 20120718
  16. FORTEO [Concomitant]
     Active Substance: TERIPARATIDE
     Indication: OSTEOPOROSIS
     Route: 065
     Dates: start: 20111012, end: 20130703
  17. NEUROTROPIN                        /06251301/ [Concomitant]
     Active Substance: ORYCTOLAGUS CUNICULUS SKIN
     Indication: RIB FRACTURE
     Dosage: UNK UNK, UNKNOWN FREQ.
     Route: 065
     Dates: start: 2013
  18. PREDNISOLONE. [Suspect]
     Active Substance: PREDNISOLONE
     Route: 048
     Dates: start: 20120329, end: 20130410
  19. WARFARIN                           /00014803/ [Concomitant]
     Active Substance: WARFARIN
     Route: 048
     Dates: start: 20140312, end: 20140326
  20. WARFARIN                           /00014803/ [Concomitant]
     Active Substance: WARFARIN
     Route: 048
     Dates: start: 20140327, end: 20140604
  21. VONFENAC [Concomitant]
     Active Substance: DICLOFENAC SODIUM
     Indication: BACK PAIN
     Dosage: ADEQUATE DOSE
     Route: 054
     Dates: end: 20080910
  22. PURSENNID [Concomitant]
     Active Substance: SENNOSIDES A AND B
     Indication: CONSTIPATION
     Route: 048
     Dates: start: 20081106, end: 20090204
  23. FORTEO [Concomitant]
     Active Substance: TERIPARATIDE
     Indication: PROPHYLAXIS
  24. MAGNESIUM OXIDE. [Concomitant]
     Active Substance: MAGNESIUM OXIDE
     Indication: ILEUS
     Route: 048
     Dates: start: 20120824, end: 20130116
  25. PL [Concomitant]
     Active Substance: ACETAMINOPHEN\CAFFEINE\PROMETHAZINE\SALICYLAMIDE
     Indication: NASOPHARYNGITIS
     Route: 048
     Dates: start: 20130228, end: 20130304
  26. LOXONIN [Concomitant]
     Active Substance: LOXOPROFEN SODIUM
     Indication: FEMUR FRACTURE
     Route: 048
     Dates: start: 20140313, end: 20140409
  27. TACROLIMUS. [Suspect]
     Active Substance: TACROLIMUS
     Indication: LUPUS NEPHRITIS
     Route: 048
     Dates: start: 20080814, end: 20131211
  28. TACROLIMUS. [Suspect]
     Active Substance: TACROLIMUS
     Route: 048
     Dates: start: 20160721
  29. PREDNISOLONE. [Suspect]
     Active Substance: PREDNISOLONE
     Route: 048
     Dates: start: 20101007, end: 20111012
  30. PREDNISOLONE. [Suspect]
     Active Substance: PREDNISOLONE
     Route: 048
     Dates: start: 20111013, end: 20120328
  31. PREDNISOLONE. [Suspect]
     Active Substance: PREDNISOLONE
     Route: 048
     Dates: start: 20130411, end: 20130814
  32. WARFARIN                           /00014803/ [Concomitant]
     Active Substance: WARFARIN
     Route: 048
     Dates: start: 20120913, end: 20130703
  33. BONALON [Concomitant]
     Active Substance: ALENDRONATE SODIUM
     Indication: OSTEOPOROSIS PROPHYLAXIS
     Route: 048
     Dates: start: 20110407, end: 20111012
  34. TOYOFAROL [Concomitant]
     Active Substance: ALFACALCIDOL
     Indication: OSTEOPOROSIS
     Dosage: 0.25 ?G, ONCE DAILY
     Route: 048
     Dates: start: 20111207
  35. MAGNESIUM OXIDE. [Concomitant]
     Active Substance: MAGNESIUM OXIDE
     Indication: CONSTIPATION
     Route: 048
     Dates: start: 20130117, end: 20151014
  36. PRALIA [Concomitant]
     Active Substance: DENOSUMAB
     Indication: OSTEOPOROSIS PROPHYLAXIS
  37. TACROLIMUS. [Suspect]
     Active Substance: TACROLIMUS
     Route: 048
     Dates: start: 20131212, end: 20140226
  38. TACROLIMUS. [Suspect]
     Active Substance: TACROLIMUS
     Route: 048
     Dates: start: 20140227, end: 20150408
  39. WARFARIN                           /00014803/ [Concomitant]
     Active Substance: WARFARIN
     Route: 048
     Dates: start: 20100204, end: 20100407
  40. WARFARIN                           /00014803/ [Concomitant]
     Active Substance: WARFARIN
     Route: 048
     Dates: start: 20100610, end: 20120912
  41. BLOSTAR M [Concomitant]
     Route: 048
     Dates: start: 20120719
  42. VONFENAC [Concomitant]
     Active Substance: DICLOFENAC SODIUM
     Indication: FEMUR FRACTURE
     Route: 054
     Dates: start: 20140307, end: 20140313
  43. VONFENAC [Concomitant]
     Active Substance: DICLOFENAC SODIUM
     Indication: RADIUS FRACTURE
  44. VONFENAC [Concomitant]
     Active Substance: DICLOFENAC SODIUM
     Indication: HUMERUS FRACTURE
  45. MAGNESIUM OXIDE. [Concomitant]
     Active Substance: MAGNESIUM OXIDE
     Indication: CONSTIPATION
     Route: 048
     Dates: start: 20160204
  46. PREDNISOLONE. [Suspect]
     Active Substance: PREDNISOLONE
     Indication: LUPUS NEPHRITIS
     Route: 048
     Dates: end: 20091111
  47. WARFARIN                           /00014803/ [Concomitant]
     Active Substance: WARFARIN
     Route: 048
     Dates: start: 20100408, end: 20100512
  48. LOCHOL [Concomitant]
     Active Substance: FLUVASTATIN SODIUM
     Indication: HYPERCHOLESTEROLAEMIA
     Route: 048
     Dates: end: 20090805
  49. BONALON [Concomitant]
     Active Substance: ALENDRONATE SODIUM
     Indication: OSTEOPOROSIS
     Route: 048
     Dates: end: 20101110
  50. VONFENAC [Concomitant]
     Active Substance: DICLOFENAC SODIUM
     Indication: RIB FRACTURE
     Route: 054
     Dates: start: 20130411, end: 20130522
  51. PRALIA [Concomitant]
     Active Substance: DENOSUMAB
     Indication: OSTEOPOROSIS
     Dosage: 60 MG, EVERY 6 MONTHS
     Route: 058
     Dates: start: 20140604
  52. PREDNISOLONE. [Suspect]
     Active Substance: PREDNISOLONE
     Route: 048
     Dates: start: 20091112, end: 20101006
  53. PREDNISOLONE. [Suspect]
     Active Substance: PREDNISOLONE
     Route: 048
     Dates: start: 20130815, end: 20140813
  54. SELBEX [Concomitant]
     Active Substance: TEPRENONE
     Indication: PROPHYLAXIS
     Route: 048
     Dates: end: 20090805
  55. SELBEX [Concomitant]
     Active Substance: TEPRENONE
     Route: 048
     Dates: start: 20090903, end: 20091209
  56. WARFARIN                           /00014803/ [Concomitant]
     Active Substance: WARFARIN
     Route: 048
     Dates: start: 20130704, end: 20140305
  57. LOCHOL [Concomitant]
     Active Substance: FLUVASTATIN SODIUM
     Route: 048
     Dates: start: 20090903, end: 20100203
  58. BLOSTAR M [Concomitant]
     Indication: PROPHYLAXIS
     Route: 048
     Dates: end: 20120718
  59. LORFENAMIN [Concomitant]
     Active Substance: LOXOPROFEN
     Indication: GINGIVAL PAIN
     Route: 048
     Dates: start: 20110215, end: 20110217
  60. LOXONIN [Concomitant]
     Active Substance: LOXOPROFEN SODIUM
     Indication: RADIUS FRACTURE

REACTIONS (10)
  - Rib fracture [Recovered/Resolved]
  - Constipation [Recovering/Resolving]
  - Nasopharyngitis [Recovered/Resolved]
  - Ileus [Recovered/Resolved]
  - Anaemia [Recovered/Resolved]
  - Humerus fracture [Recovered/Resolved]
  - Constipation [Recovering/Resolving]
  - Femur fracture [Recovered/Resolved]
  - Gingival pain [Recovered/Resolved]
  - Radius fracture [Recovered/Resolved]

NARRATIVE: CASE EVENT DATE: 20110215
